FAERS Safety Report 10938084 (Version 2)
Quarter: 2015Q2

REPORT INFORMATION
  Report Type: Spontaneous
  Country: US (occurrence: US)
  Receive Date: 20150321
  Receipt Date: 20150525
  Transmission Date: 20150821
  Serious: No
  Sender: FDA-Public Use
  Company Number: US-JNJFOC-20120406193

PATIENT
  Age: 43 Year
  Sex: Female
  Weight: 77.11 kg

DRUGS (4)
  1. STELARA [Suspect]
     Active Substance: USTEKINUMAB
     Indication: PSORIASIS
     Route: 058
     Dates: start: 20110126
  2. LISINOPRIL. [Concomitant]
     Active Substance: LISINOPRIL
     Indication: BLOOD PRESSURE
     Route: 048
     Dates: start: 20101026
  3. UNSPECIFIED BLOOD PRESSURE MEDS [Concomitant]
     Indication: BLOOD PRESSURE
     Route: 048
     Dates: start: 2007
  4. RELAFEN [Concomitant]
     Active Substance: NABUMETONE
     Indication: ARTHRALGIA
     Dosage: AS NEEDED
     Route: 048
     Dates: start: 2010

REACTIONS (5)
  - Malaise [Not Recovered/Not Resolved]
  - Stomatitis [Not Recovered/Not Resolved]
  - Eating disorder [Not Recovered/Not Resolved]
  - Weight decreased [Not Recovered/Not Resolved]
  - Therapeutic response unexpected [Not Recovered/Not Resolved]

NARRATIVE: CASE EVENT DATE: 201203
